FAERS Safety Report 9529855 (Version 1)
Quarter: 2013Q3

REPORT INFORMATION
  Report Type: Spontaneous
  Country: US (occurrence: US)
  Receive Date: 20130917
  Receipt Date: 20130917
  Transmission Date: 20140515
  Serious: No
  Sender: FDA-Public Use
  Company Number: US-PFIZER INC-2013264015

PATIENT
  Age: 70 Year
  Sex: Male

DRUGS (1)
  1. VIRACEPT [Suspect]
     Dosage: UNK

REACTIONS (2)
  - Pollakiuria [Not Recovered/Not Resolved]
  - Thirst [Not Recovered/Not Resolved]
